FAERS Safety Report 4809368-5 (Version None)
Quarter: 2005Q4

REPORT INFORMATION
  Report Type: 
  Country: None (occurrence: None)
  Receive Date: 20051019
  Receipt Date: 20051003
  Transmission Date: 20060501
  Serious: Yes (Hospitalization)
  Sender: FDA-Public Use
  Company Number: 2005BH001760

PATIENT
  Age: 13 Year
  Sex: Male
  Weight: 74.5 kg

DRUGS (7)
  1. RECOMBINATE [Suspect]
     Indication: FACTOR VIII DEFICIENCY
     Dosage: 4000 UNITS ;EVERY DAY; IV
     Route: 042
     Dates: start: 19991101
  2. HUMAN FACTOR VIII [Concomitant]
  3. HEMOFIL [Concomitant]
  4. CROSSEIGHT M [Concomitant]
  5. NOVOSEVEN [Concomitant]
  6. FEIBA [Concomitant]
  7. CONFACT F [Concomitant]

REACTIONS (3)
  - FACTOR VIII INHIBITION [None]
  - HAEMARTHROSIS [None]
  - MUSCLE HAEMORRHAGE [None]
